FAERS Safety Report 23826131 (Version 1)
Quarter: 2024Q2

REPORT INFORMATION
  Report Type: Spontaneous
  Country: AR (occurrence: AR)
  Receive Date: 20240507
  Receipt Date: 20240507
  Transmission Date: 20240716
  Serious: Yes (Other)
  Sender: FDA-Public Use
  Company Number: AR-BAYER-2024A066379

PATIENT
  Sex: Female

DRUGS (1)
  1. XARELTO [Suspect]
     Active Substance: RIVAROXABAN
     Indication: Product used for unknown indication
     Dosage: UNK
     Route: 048

REACTIONS (7)
  - Cardiac failure [Unknown]
  - Mobility decreased [Unknown]
  - Dizziness [Unknown]
  - Anaemia [Unknown]
  - Blood pressure orthostatic [Unknown]
  - Bedridden [Unknown]
  - Blood pressure fluctuation [Unknown]
